FAERS Safety Report 5163036-1 (Version None)
Quarter: 2006Q4

REPORT INFORMATION
  Report Type: 
  Country: None (occurrence: None)
  Receive Date: 20061201
  Receipt Date: 20010615
  Transmission Date: 20070319
  Serious: Yes (Hospitalization)
  Sender: FDA-Public Use
  Company Number: FR-ABBOTT-01P-056-0108037-00

PATIENT
  Sex: Female
  Weight: 2.9 kg

DRUGS (8)
  1. RITONAVIR SOFT GELATIN CAPSULES [Suspect]
     Indication: DRUG EXPOSURE DURING PREGNANCY
  2. NELFINAVIR [Suspect]
     Indication: DRUG EXPOSURE DURING PREGNANCY
  3. EFAVIRENZ [Suspect]
     Indication: DRUG EXPOSURE DURING PREGNANCY
  4. NEVIRAPINE [Suspect]
     Indication: DRUG EXPOSURE DURING PREGNANCY
     Route: 048
  5. DIDANOSINE [Suspect]
     Indication: DRUG EXPOSURE DURING PREGNANCY
     Route: 048
  6. DIDANOSINE [Suspect]
     Indication: PROPHYLAXIS AGAINST HIV INFECTION
     Route: 048
     Dates: start: 20010228
  7. NEVIRAPINE [Concomitant]
     Indication: PROPHYLAXIS AGAINST HIV INFECTION
     Route: 048
  8. DIDANOSINE [Concomitant]
     Route: 048

REACTIONS (8)
  - ABDOMINAL DISTENSION [None]
  - BLOOD LACTIC ACID INCREASED [None]
  - CAESAREAN SECTION [None]
  - DRUG EXPOSURE DURING PREGNANCY [None]
  - HEPATOSPLENOMEGALY [None]
  - HEPATOSPLENOMEGALY NEONATAL [None]
  - HYPERTRIGLYCERIDAEMIA [None]
  - NEUTROPENIA [None]
